FAERS Safety Report 25524833 (Version 1)
Quarter: 2025Q3

REPORT INFORMATION
  Report Type: Spontaneous
  Country: GB (occurrence: GB)
  Receive Date: 20250707
  Receipt Date: 20250707
  Transmission Date: 20251020
  Serious: Yes (Hospitalization, Other)
  Sender: MYLAN
  Company Number: None

PATIENT
  Age: 28 Year
  Sex: Female

DRUGS (3)
  1. ARIPIPRAZOLE [Suspect]
     Active Substance: ARIPIPRAZOLE
     Indication: Psychiatric disorder prophylaxis
     Dosage: 5 MILLIGRAM, QD ( 5MG OD )
     Dates: start: 20250604
  2. ARIPIPRAZOLE [Suspect]
     Active Substance: ARIPIPRAZOLE
  3. FOLIC ACID [Concomitant]
     Active Substance: FOLIC ACID
     Indication: Vitamin supplementation

REACTIONS (2)
  - Liver injury [Recovering/Resolving]
  - Maternal exposure during pregnancy [Unknown]

NARRATIVE: CASE EVENT DATE: 20250604
